FAERS Safety Report 16019825 (Version 1)
Quarter: 2019Q1

REPORT INFORMATION
  Report Type: Spontaneous
  Country: US (occurrence: US)
  Receive Date: 20190228
  Receipt Date: 20190228
  Transmission Date: 20190418
  Serious: Yes (Hospitalization, Other)
  Sender: FDA-Public Use
  Company Number: US-ASTRAZENECA-2019SE30659

PATIENT
  Age: 19773 Day
  Sex: Male
  Weight: 81.2 kg

DRUGS (23)
  1. AMLODIPINE [Concomitant]
     Active Substance: AMLODIPINE BESYLATE
     Dates: start: 2014, end: 2016
  2. VENTOLIN [Concomitant]
     Active Substance: ALBUTEROL SULFATE
  3. ALBUTEROL. [Concomitant]
     Active Substance: ALBUTEROL
  4. RANITIDINE. [Concomitant]
     Active Substance: RANITIDINE
  5. CLONIDINE. [Concomitant]
     Active Substance: CLONIDINE
  6. CLONIDINE. [Concomitant]
     Active Substance: CLONIDINE
  7. DIAZEPAM. [Concomitant]
     Active Substance: DIAZEPAM
  8. DEXILANT [Suspect]
     Active Substance: DEXLANSOPRAZOLE
     Indication: ABDOMINAL DISCOMFORT
     Dosage: 60.0MG UNKNOWN
     Route: 065
     Dates: start: 20110221
  9. DEXILANT [Suspect]
     Active Substance: DEXLANSOPRAZOLE
     Indication: ABDOMINAL DISCOMFORT
     Dosage: 60.0MG UNKNOWN
     Route: 065
     Dates: start: 20140419
  10. PREVACID [Suspect]
     Active Substance: LANSOPRAZOLE
     Indication: ABDOMINAL DISCOMFORT
     Dosage: 30.0MG UNKNOWN
     Route: 065
     Dates: start: 2006, end: 2009
  11. HYDROCODONE [Concomitant]
     Active Substance: HYDROCODONE
  12. PRILOSEC [Suspect]
     Active Substance: OMEPRAZOLE MAGNESIUM
     Indication: ABDOMINAL DISCOMFORT
     Dosage: 30.0MG UNKNOWN
     Route: 048
  13. PREVACID [Suspect]
     Active Substance: LANSOPRAZOLE
     Indication: ABDOMINAL DISCOMFORT
     Dosage: GENERIC30.0MG UNKNOWN
     Route: 065
  14. PREVACID [Suspect]
     Active Substance: LANSOPRAZOLE
     Indication: ABDOMINAL DISCOMFORT
     Dosage: GENERIC30.0MG UNKNOWN
     Route: 065
     Dates: start: 20140409
  15. METOPROLOL. [Concomitant]
     Active Substance: METOPROLOL
  16. ZANTAC [Concomitant]
     Active Substance: RANITIDINE HYDROCHLORIDE
  17. CRESTOR [Concomitant]
     Active Substance: ROSUVASTATIN CALCIUM
  18. LOSARTAN. [Concomitant]
     Active Substance: LOSARTAN
  19. PREVACID [Suspect]
     Active Substance: LANSOPRAZOLE
     Indication: ABDOMINAL DISCOMFORT
     Dosage: GENERIC30.0MG UNKNOWN
     Route: 065
     Dates: start: 20091221
  20. AMLODIPINE [Concomitant]
     Active Substance: AMLODIPINE BESYLATE
  21. DEXILANT [Suspect]
     Active Substance: DEXLANSOPRAZOLE
     Indication: ABDOMINAL DISCOMFORT
     Dosage: 60.0MG UNKNOWN
     Route: 065
     Dates: start: 2009
  22. PREVACID [Suspect]
     Active Substance: LANSOPRAZOLE
     Indication: ABDOMINAL DISCOMFORT
     Dosage: 30.0MG UNKNOWN
     Route: 065
     Dates: start: 20060926
  23. HYDROCODONE [Concomitant]
     Active Substance: HYDROCODONE

REACTIONS (6)
  - End stage renal disease [Unknown]
  - Nephrogenic anaemia [Unknown]
  - Hyperparathyroidism secondary [Unknown]
  - Acute kidney injury [Unknown]
  - Renal failure [Not Recovered/Not Resolved]
  - Chronic kidney disease [Unknown]

NARRATIVE: CASE EVENT DATE: 20140409
